FAERS Safety Report 5271833-7 (Version None)
Quarter: 2007Q1

REPORT INFORMATION
  Report Type: 
  Country: None (occurrence: None)
  Receive Date: 20070316
  Receipt Date: 20070302
  Transmission Date: 20070707
  Serious: Yes (Hospitalization)
  Sender: FDA-Public Use
  Company Number: 2007JP000962

PATIENT
  Age: 3 Year
  Sex: Male

DRUGS (1)
  1. PROGRAF [Suspect]
     Indication: LIVER TRANSPLANT

REACTIONS (1)
  - HAEMOLYTIC ANAEMIA [None]
